FAERS Safety Report 9157971 (Version 1)
Quarter: 2013Q1

REPORT INFORMATION
  Report Type: Spontaneous
  Country: US (occurrence: None)
  Receive Date: 20130212
  Receipt Date: 20130212
  Transmission Date: 20140127
  Serious: Yes (Hospitalization)
  Sender: FDA-Public Use
  Company Number: USA/USA/13/0027792

PATIENT
  Age: 77 Year
  Sex: Female

DRUGS (2)
  1. FONDAPARINUX SODIUM [Suspect]
     Indication: EMBOLISM VENOUS
  2. ENOXAPARIN (ENOXAPARIN) [Concomitant]

REACTIONS (2)
  - Compartment syndrome [None]
  - Post procedural haematoma [None]
